FAERS Safety Report 8013084-9 (Version None)
Quarter: 2011Q4

REPORT INFORMATION
  Report Type: 
  Country: None (occurrence: None)
  Receive Date: 20111229
  Receipt Date: 20111227
  Transmission Date: 20120403
  Serious: Yes (Hospitalization)
  Sender: FDA-Public Use
  Company Number: US-B.I. PHARMACEUTICALS,INC./RIDGEFIELD-2011-BP-28830BP

PATIENT
  Sex: Male

DRUGS (14)
  1. ASPIRIN [Concomitant]
     Dosage: 81 MG
     Route: 048
  2. CARDIZEM ER [Concomitant]
     Dosage: 120 MG
     Route: 048
  3. PREDNISONE TAB [Concomitant]
     Dosage: 5 MG
     Route: 048
  4. LISINOPRIL [Concomitant]
     Dosage: 10 MG
     Route: 048
  5. WELCHOL [Concomitant]
     Indication: BLOOD CHOLESTEROL INCREASED
     Dosage: 3750 MG
     Route: 048
  6. FLAX SEED OIL [Concomitant]
     Dosage: 1000 MG
     Route: 048
  7. AMITRIPTYLINE [Concomitant]
     Dosage: 20 MG
     Route: 048
  8. SYNTHROID [Concomitant]
     Dosage: 225 MG
     Route: 048
  9. NEXIUM [Concomitant]
     Route: 048
  10. FISH OIL [Concomitant]
     Dosage: 1200 MG
     Route: 048
  11. IMDUR [Concomitant]
     Dosage: 30 MG
     Route: 048
  12. PRADAXA [Suspect]
     Indication: ATRIAL FIBRILLATION
     Dosage: 300 MG
     Route: 048
     Dates: start: 20110701
  13. ALLOPURINOL [Concomitant]
     Dosage: 200 MG
     Route: 048
  14. SOTALOL HCL [Concomitant]
     Dosage: 240 MG
     Route: 048

REACTIONS (3)
  - EYE INFECTION [None]
  - ATRIAL FIBRILLATION [None]
  - CONTUSION [None]
